FAERS Safety Report 11185063 (Version 3)
Quarter: 2015Q2

REPORT INFORMATION
  Report Type: Spontaneous
  Country: FR (occurrence: FR)
  Receive Date: 20150612
  Receipt Date: 20150626
  Transmission Date: 20150821
  Serious: Yes (Hospitalization, Other)
  Sender: FDA-Public Use
  Company Number: FR-PFIZER INC-2015191353

PATIENT
  Age: 43 Year
  Sex: Male

DRUGS (13)
  1. HALOPERIDOL. [Concomitant]
     Active Substance: HALOPERIDOL
     Dosage: UNK
  2. CISATRACURIUM [Concomitant]
     Active Substance: CISATRACURIUM
     Dosage: UNK
  3. LEVOFLOXACINE ACTAVIS [Suspect]
     Active Substance: LEVOFLOXACIN
     Indication: PNEUMONIA LEGIONELLA
     Dosage: 500 MG, 2X/DAY
     Route: 042
     Dates: start: 20141013, end: 20141023
  4. MIDAZOLAM [Concomitant]
     Active Substance: MIDAZOLAM\MIDAZOLAM HYDROCHLORIDE
     Dosage: UNK
  5. LEVOFLOXACINE ACTAVIS [Suspect]
     Active Substance: LEVOFLOXACIN
     Dosage: DOSE REDUCED
     Route: 042
     Dates: start: 20141024, end: 20141028
  6. TRANXENE T-TAB [Concomitant]
     Active Substance: CLORAZEPATE DIPOTASSIUM
     Dosage: UNK
  7. REMIFENTANIL [Concomitant]
     Active Substance: REMIFENTANIL
     Dosage: UNK
  8. KETAMINE [Concomitant]
     Active Substance: KETAMINE
     Dosage: UNK
  9. SUXAMETHONIUM [Concomitant]
     Active Substance: SUCCINYLCHOLINE
     Dosage: UNK
  10. ESMOLOL [Concomitant]
     Active Substance: ESMOLOL HYDROCHLORIDE
     Dosage: UNK
  11. ZITHROMAX [Suspect]
     Active Substance: AZITHROMYCIN DIHYDRATE
     Indication: PNEUMONIA LEGIONELLA
     Dosage: 500 MG, 1X/DAY
     Route: 048
     Dates: start: 20141013, end: 20141021
  12. CEFTRIAXONE PANPHARMA [Concomitant]
     Active Substance: CEFTRIAXONE
     Indication: PNEUMONIA
     Dosage: UNK
     Dates: start: 20141013, end: 20141013
  13. NOREPINEPHRINE [Concomitant]
     Active Substance: NOREPINEPHRINE\NOREPINEPHRINE BITARTRATE
     Dosage: UNK

REACTIONS (2)
  - Pancreatitis acute [Recovered/Resolved]
  - Cholestasis [Recovered/Resolved]

NARRATIVE: CASE EVENT DATE: 20141016
